FAERS Safety Report 6883082-7 (Version None)
Quarter: 2010Q3

REPORT INFORMATION
  Report Type: 
  Country: None (occurrence: None)
  Receive Date: 20100729
  Receipt Date: 20100723
  Transmission Date: 20110219
  Serious: Yes (Death, Hospitalization, Other)
  Sender: FDA-Public Use
  Company Number: DE-BRISTOL-MYERS SQUIBB COMPANY-15177611

PATIENT
  Age: 70 Year
  Sex: Male
  Weight: 126 kg

DRUGS (12)
  1. ONGLYZA [Suspect]
     Indication: DIABETES MELLITUS
     Dosage: 1 DF = 1 TAB
     Route: 048
     Dates: start: 20100617, end: 20100701
  2. IBU KD [Concomitant]
     Dosage: FILM COATED TABS
     Route: 048
  3. JANUVIA [Concomitant]
     Dosage: 1 DF= 100 UNITS NOT MENTIONED
  4. METFORMIN HCL [Concomitant]
     Dosage: 1 DF= 1000 UNITS NOT MENTIONED
  5. BISOPROLOL [Concomitant]
     Dosage: 1 DF= 2.5 UNITS NOT MENTIONED
  6. SYMBICORT [Concomitant]
     Dosage: 1 DF= 320/9 UNITS NOT MENTIONED
  7. TORSEMIDE [Concomitant]
     Dosage: 1 DF= 10 UNITS NOT MENTIONED
  8. SIMVAHEXAL [Concomitant]
     Dosage: 1 DF= 20 UNITS NOT MENTIONED
  9. SPIRIVA [Concomitant]
  10. BERODUAL [Concomitant]
  11. DIGIMERCK [Concomitant]
     Dosage: 1 DF= 0.1 UNITS NOT MENTIONED ON SUNDAYS BREAK
  12. MARCUMAR [Concomitant]
     Dosage: ACCORDING TO PLAN

REACTIONS (3)
  - BLISTER [None]
  - CARDIAC FAILURE [None]
  - PNEUMONIA [None]
